FAERS Safety Report 21051858 (Version 1)
Quarter: 2022Q3

REPORT INFORMATION
  Report Type: Spontaneous
  Country: US (occurrence: None)
  Receive Date: 20220706
  Receipt Date: 20220706
  Transmission Date: 20221027
  Serious: No
  Sender: FDA-Public Use
  Company Number: None

PATIENT
  Age: 72 Year
  Sex: Female
  Weight: 69.4 kg

DRUGS (2)
  1. TIXAGEVIMAB [Suspect]
     Active Substance: TIXAGEVIMAB
     Indication: Immunodeficiency
     Route: 030
     Dates: start: 20220622
  2. CILGAVIMAB [Suspect]
     Active Substance: CILGAVIMAB
     Indication: Immunodeficiency
     Route: 030
     Dates: start: 20220622

REACTIONS (5)
  - Dysphagia [None]
  - Throat tightness [None]
  - Tongue disorder [None]
  - Feeling hot [None]
  - Diplopia [None]

NARRATIVE: CASE EVENT DATE: 20220622
